FAERS Safety Report 5480855-2 (Version None)
Quarter: 2007Q3

REPORT INFORMATION
  Report Type: 
  Country: None (occurrence: None)
  Receive Date: 20070917
  Receipt Date: 20070719
  Transmission Date: 20080115
  Serious: Yes (Hospitalization)
  Sender: FDA-Public Use
  Company Number: BDI-009837

PATIENT
  Age: 75 Year
  Sex: Female
  Weight: 47.7 kg

DRUGS (2)
  1. MULTIHANCE [Suspect]
     Indication: BACK PAIN
     Dosage: 10 ML ONCE IV
     Route: 042
     Dates: start: 20070719, end: 20070719
  2. MULTIHANCE [Suspect]
     Indication: NUCLEAR MAGNETIC RESONANCE IMAGING
     Dosage: 10 ML ONCE IV
     Route: 042
     Dates: start: 20070719, end: 20070719

REACTIONS (2)
  - CONVULSION [None]
  - SYNCOPE VASOVAGAL [None]
